FAERS Safety Report 16125148 (Version 14)
Quarter: 2020Q1

REPORT INFORMATION
  Report Type: Report from Study
  Country: US (occurrence: US)
  Receive Date: 20190327
  Receipt Date: 20200211
  Transmission Date: 20200409
  Serious: Yes (Hospitalization, Other)
  Sender: FDA-Public Use
  Company Number: US-ACTELION-A-US2018-177853

PATIENT
  Age: 48 Year
  Sex: Male
  Weight: 143.31 kg

DRUGS (14)
  1. VELETRI [Suspect]
     Active Substance: EPOPROSTENOL
     Dosage: 5.5 NG/KG, PER MIN
     Route: 042
  2. VELETRI [Suspect]
     Active Substance: EPOPROSTENOL
     Dosage: UNK
     Route: 042
     Dates: start: 201807
  3. WARFARIN [Concomitant]
     Active Substance: WARFARIN
  4. PLAQUENIL [Concomitant]
     Active Substance: HYDROXYCHLOROQUINE SULFATE
     Dosage: UNK
     Route: 065
     Dates: end: 201904
  5. VELETRI [Suspect]
     Active Substance: EPOPROSTENOL
     Indication: PULMONARY HYPERTENSION
     Dosage: 2 NG/KG, PER MIN
     Route: 042
  6. VELETRI [Suspect]
     Active Substance: EPOPROSTENOL
     Dosage: 8.5 UNK
     Route: 042
  7. VELETRI [Suspect]
     Active Substance: EPOPROSTENOL
     Dosage: 6.5 NG/KG, PER MIN
     Route: 042
     Dates: start: 20190127
  8. OPSUMIT [Suspect]
     Active Substance: MACITENTAN
     Indication: PULMONARY HYPERTENSION
     Dosage: 10 MG, QD
     Route: 048
  9. VELETRI [Suspect]
     Active Substance: EPOPROSTENOL
     Dosage: 3 NG/KG, PER MIN
     Route: 042
  10. ELIQUIS [Concomitant]
     Active Substance: APIXABAN
  11. VELETRI [Suspect]
     Active Substance: EPOPROSTENOL
     Dosage: 10.6 NG/KG, PER MIN
     Route: 042
     Dates: start: 20190127
  12. VELETRI [Suspect]
     Active Substance: EPOPROSTENOL
     Dosage: 9.25 NG/KG, PER MIN
     Route: 042
  13. TADALAFIL. [Concomitant]
     Active Substance: TADALAFIL
  14. VELETRI [Suspect]
     Active Substance: EPOPROSTENOL
     Dosage: 6 NG/KG, PER MIN
     Route: 042

REACTIONS (40)
  - Systemic lupus erythematosus [Unknown]
  - Peripheral swelling [Unknown]
  - Palpitations [Not Recovered/Not Resolved]
  - Oedema [Unknown]
  - Emergency care [Unknown]
  - Skin infection [Unknown]
  - Dyspnoea [Unknown]
  - Catheter site haemorrhage [Unknown]
  - Headache [Not Recovered/Not Resolved]
  - Gingival disorder [Unknown]
  - Oral pain [Unknown]
  - Skin discomfort [Unknown]
  - Diarrhoea [Not Recovered/Not Resolved]
  - Tongue blistering [Unknown]
  - Fatigue [Unknown]
  - Cyst [Unknown]
  - Diplopia [Unknown]
  - Rash macular [Unknown]
  - Rash pruritic [Not Recovered/Not Resolved]
  - Pruritus [Unknown]
  - Abdominal pain upper [Recovered/Resolved]
  - Catheter site erythema [Unknown]
  - Acne [Unknown]
  - Localised infection [Unknown]
  - Discharge [Unknown]
  - Burn oral cavity [Unknown]
  - Tongue disorder [Unknown]
  - Vision blurred [Unknown]
  - Oral mucosal blistering [Unknown]
  - Oral herpes [Unknown]
  - Fluid retention [Unknown]
  - Rash [Not Recovered/Not Resolved]
  - Dizziness [Unknown]
  - Back pain [Unknown]
  - Dyspnoea exertional [Not Recovered/Not Resolved]
  - Influenza [Unknown]
  - Thrombosis [Unknown]
  - Pain in jaw [Not Recovered/Not Resolved]
  - Retching [Recovered/Resolved]
  - Pain [Unknown]

NARRATIVE: CASE EVENT DATE: 201810
